FAERS Safety Report 15274762 (Version 1)
Quarter: 2018Q3

REPORT INFORMATION
  Report Type: Spontaneous
  Country: DE (occurrence: DE)
  Receive Date: 20180814
  Receipt Date: 20180814
  Transmission Date: 20181010
  Serious: Yes (Other)
  Sender: FDA-Public Use
  Company Number: DE-TEVA-2018-DE-939231

PATIENT
  Age: 76 Year
  Sex: Male
  Weight: 82 kg

DRUGS (9)
  1. MADOPAR [Concomitant]
     Active Substance: BENSERAZIDE HYDROCHLORIDE\LEVODOPA
     Indication: PARKINSONISM
     Dosage: 45 ML DAILY;
     Dates: start: 2011
  2. SEROQUEL [Concomitant]
     Active Substance: QUETIAPINE FUMARATE
     Indication: PARKINSONISM
     Dosage: UNK
     Route: 048
     Dates: start: 2011
  3. ELIQUIS [Concomitant]
     Active Substance: APIXABAN
     Indication: PLATELET AGGREGATION INHIBITION
     Dosage: 2.5 MG, TWO TIMES A DAY
     Dates: start: 2017
  4. GEMCITABINE [Suspect]
     Active Substance: GEMCITABINE\GEMCITABINE HYDROCHLORIDE
     Indication: PANCREATIC CARCINOMA
     Dosage: 1250 MILLIGRAM DAILY; UNK
     Route: 042
     Dates: start: 20170804, end: 20180103
  5. MOVICOL [Concomitant]
     Active Substance: POLYETHYLENE GLYCOL 3350\POTASSIUM CHLORIDE\SODIUM BICARBONATE\SODIUM CHLORIDE
     Indication: CONSTIPATION
     Dosage: 1 SACHET, UNK
     Route: 048
     Dates: start: 2017
  6. OPRYMEA [Concomitant]
     Active Substance: PRAMIPEXOLE DIHYDROCHLORIDE
     Indication: PARKINSONISM
     Dosage: .78 MILLIGRAM DAILY;
     Route: 048
     Dates: start: 2011
  7. SIMVASTATIN. [Concomitant]
     Active Substance: SIMVASTATIN
     Indication: HYPERLIPIDAEMIA
     Dosage: UNK
     Route: 048
     Dates: start: 2012
  8. PACLITAXEL. [Concomitant]
     Active Substance: PACLITAXEL
     Indication: PANCREATIC CARCINOMA
     Dosage: UNK
     Route: 042
     Dates: start: 20170804
  9. PANTOPRAZOL [Concomitant]
     Active Substance: PANTOPRAZOLE SODIUM
     Indication: GASTRIC PH INCREASED
     Dosage: UNK
     Route: 048
     Dates: start: 2017

REACTIONS (5)
  - Immobile [Recovering/Resolving]
  - Oedema peripheral [Recovering/Resolving]
  - Weight increased [Recovering/Resolving]
  - Dyspnoea [Recovering/Resolving]
  - Panniculitis [Recovering/Resolving]

NARRATIVE: CASE EVENT DATE: 201711
